FAERS Safety Report 17043508 (Version 5)
Quarter: 2020Q1

REPORT INFORMATION
  Report Type: Spontaneous
  Country: US (occurrence: US)
  Receive Date: 20191118
  Receipt Date: 20200214
  Transmission Date: 20200409
  Serious: Yes (Hospitalization, Other)
  Sender: FDA-Public Use
  Company Number: US-PFIZER INC-2019493909

PATIENT
  Age: 72 Year
  Sex: Male
  Weight: 90.7 kg

DRUGS (7)
  1. INLYTA [Suspect]
     Active Substance: AXITINIB
     Indication: RENAL CANCER
     Dosage: 6 MG, UNK
  2. INLYTA [Suspect]
     Active Substance: AXITINIB
     Indication: RENAL CELL CARCINOMA
     Dosage: 1 MG, UNK
  3. INLYTA [Suspect]
     Active Substance: AXITINIB
     Dosage: 5 MG, 2X/DAY
     Route: 048
     Dates: start: 20191026, end: 20191111
  4. KEYTRUDA [Concomitant]
     Active Substance: PEMBROLIZUMAB
     Dosage: 200 MG, UNK
     Route: 042
     Dates: start: 20191115
  5. INLYTA [Suspect]
     Active Substance: AXITINIB
     Dosage: 10 MG, 2X/DAY
     Dates: end: 20191205
  6. INLYTA [Suspect]
     Active Substance: AXITINIB
     Dosage: 3 MG, 2X/DAY
     Route: 048
     Dates: end: 20191226
  7. KEYTRUDA [Concomitant]
     Active Substance: PEMBROLIZUMAB
     Indication: RENAL CANCER
     Dosage: UNK
     Dates: start: 20191014, end: 20191115

REACTIONS (9)
  - Acute kidney injury [Recovered/Resolved]
  - Creatinine renal clearance decreased [Unknown]
  - Asthenia [Not Recovered/Not Resolved]
  - Weight decreased [Recovered/Resolved]
  - Blood creatine abnormal [Unknown]
  - Blood pressure fluctuation [Recovered/Resolved]
  - Fatigue [Not Recovered/Not Resolved]
  - Decreased appetite [Recovering/Resolving]
  - Blood urea abnormal [Not Recovered/Not Resolved]

NARRATIVE: CASE EVENT DATE: 20191111
